FAERS Safety Report 5383807-6 (Version None)
Quarter: 2007Q3

REPORT INFORMATION
  Report Type: 
  Country: None (occurrence: None)
  Receive Date: 20070711
  Receipt Date: 20070709
  Transmission Date: 20080115
  Serious: Yes (Other)
  Sender: FDA-Public Use
  Company Number: GBWYE293902APR07

PATIENT
  Age: 28 Year
  Sex: Female

DRUGS (7)
  1. IBUPROFEN [Suspect]
     Dosage: UNKNOWN
     Route: 048
  2. SERTRALINE [Concomitant]
     Dosage: UNKNOWN
     Dates: start: 20010501
  3. SULPIRIDE [Concomitant]
     Dosage: UNKNOWN
     Dates: start: 20010501
  4. PAROXETINE HYDROCHLORIDE [Suspect]
     Indication: DEPRESSION
     Dosage: UNKNOWN
     Dates: start: 19970902, end: 19990301
  5. PAROXETINE HYDROCHLORIDE [Suspect]
     Dosage: ONE QUARTER OF A TABLET ONLY, DOSE NOT SPECIFIED
     Dates: start: 19990301
  6. PAROXETINE HYDROCHLORIDE [Suspect]
  7. PAROXETINE HYDROCHLORIDE [Suspect]
     Dates: start: 20000907, end: 20010101

REACTIONS (1)
  - INTENTIONAL OVERDOSE [None]
